FAERS Safety Report 16550714 (Version 1)
Quarter: 2019Q3

REPORT INFORMATION
  Report Type: Spontaneous
  Country: US (occurrence: US)
  Receive Date: 20190709
  Receipt Date: 20190709
  Transmission Date: 20191004
  Serious: Yes (Death)
  Sender: FDA-Public Use
  Company Number: None

PATIENT
  Sex: Female

DRUGS (13)
  1. TEMOZOLOMIDE. [Suspect]
     Active Substance: TEMOZOLOMIDE
     Indication: ANAL CANCER
     Route: 048
     Dates: start: 20190415, end: 20190708
  2. VERZENIO [Suspect]
     Active Substance: ABEMACICLIB
     Indication: ANAL CANCER
     Route: 048
     Dates: start: 20190424, end: 20190708
  3. BUPROPION. [Concomitant]
     Active Substance: BUPROPION
  4. A-HYDROCORT [Concomitant]
     Active Substance: HYDROCORTISONE SODIUM SUCCINATE
  5. MEMANTINE. [Concomitant]
     Active Substance: MEMANTINE
  6. OXYCODONE [Concomitant]
     Active Substance: OXYCODONE
  7. LEVETIRACETA [Concomitant]
  8. OLANZAPINE. [Concomitant]
     Active Substance: OLANZAPINE
  9. SULFAMETHOX [Concomitant]
  10. PROCHLORPER [Concomitant]
  11. ACETAMIN [Concomitant]
     Active Substance: ACETAMINOPHEN
  12. BUDESONIDE. [Concomitant]
     Active Substance: BUDESONIDE
  13. CETIRIZINE [Concomitant]
     Active Substance: CETIRIZINE HYDROCHLORIDE

REACTIONS (1)
  - Death [None]
